FAERS Safety Report 24084458 (Version 1)
Quarter: 2024Q3

REPORT INFORMATION
  Report Type: Spontaneous
  Country: US (occurrence: None)
  Receive Date: 20240711
  Receipt Date: 20240711
  Transmission Date: 20241016
  Serious: No
  Sender: Public
  Company Number: None

PATIENT
  Age: 79 Year
  Sex: Male
  Weight: 90 kg

DRUGS (1)
  1. POTASSIUM [Suspect]
     Active Substance: POTASSIUM
     Route: 048

REACTIONS (1)
  - Muscular weakness [None]
